FAERS Safety Report 21384613 (Version 1)
Quarter: 2022Q3

REPORT INFORMATION
  Report Type: Spontaneous
  Country: US (occurrence: US)
  Receive Date: 20220928
  Receipt Date: 20220928
  Transmission Date: 20221027
  Serious: No
  Sender: FDA-Public Use
  Company Number: US-HORIZON THERAPEUTICS-HZN-2021-007886

PATIENT

DRUGS (2)
  1. KRYSTEXXA [Suspect]
     Active Substance: PEGLOTICASE
     Indication: Gout
     Dosage: UNK
     Route: 065
     Dates: start: 20210920, end: 20211101
  2. CELLCEPT [Concomitant]
     Active Substance: MYCOPHENOLATE MOFETIL
     Indication: Product used for unknown indication
     Route: 065

REACTIONS (4)
  - Dizziness [Recovered/Resolved]
  - Blood uric acid increased [Unknown]
  - Dyspnoea [Recovered/Resolved]
  - Asthenia [Recovered/Resolved]
